FAERS Safety Report 6134251-5 (Version None)
Quarter: 2009Q1

REPORT INFORMATION
  Report Type: 
  Country: None (occurrence: None)
  Receive Date: 20090325
  Receipt Date: 20090311
  Transmission Date: 20090719
  Serious: Yes (Other)
  Sender: FDA-Public Use
  Company Number: DSU-2009-00664

PATIENT
  Age: 76 Year
  Sex: Female

DRUGS (4)
  1. OLMESARTAN MEDOXOMIL [Suspect]
     Indication: HYPERTENSION
     Dosage: 40 MG (40 MG,QD),PER ORAL
     Route: 048
     Dates: start: 20060101
  2. CHEMOTHERAPY (OTHER CHEMOTHERAPEUTICS) [Suspect]
     Dates: end: 20081101
  3. WARFARIN SODIUM [Concomitant]
  4. BETALO ZOC (METOPROLOL TARTRATE) (METOPROLOL TARTRATE) [Concomitant]

REACTIONS (4)
  - CATARACT [None]
  - LYMPHOMA [None]
  - PNEUMONIA [None]
  - THROMBOSIS [None]
